FAERS Safety Report 6866249-3 (Version None)
Quarter: 2010Q3

REPORT INFORMATION
  Report Type: 
  Country: None (occurrence: None)
  Receive Date: 20100722
  Receipt Date: 20100713
  Transmission Date: 20110219
  Serious: Yes (Other)
  Sender: FDA-Public Use
  Company Number: US-BAYER-201018018BCC

PATIENT
  Age: 76 Year

DRUGS (2)
  1. ASPIRIN [Suspect]
     Indication: PRODUCT USED FOR UNKNOWN INDICATION
     Dosage: BOTTLE COUNT UNKNOWN
     Route: 065
  2. EPTIFIBATIDE [Concomitant]
     Route: 065

REACTIONS (1)
  - CARDIAC TAMPONADE [None]
